FAERS Safety Report 10742979 (Version 2)
Quarter: 2015Q1

REPORT INFORMATION
  Report Type: Report from Study
  Country: SE (occurrence: SE)
  Receive Date: 20150127
  Receipt Date: 20150130
  Transmission Date: 20150721
  Serious: Yes (Hospitalization)
  Sender: FDA-Public Use
  Company Number: SE-ABBVIE-14P-150-1320118-00

PATIENT
  Age: 58 Year
  Sex: Female

DRUGS (1)
  1. DUODOPA [Suspect]
     Active Substance: CARBIDOPA\LEVODOPA
     Indication: PARKINSON^S DISEASE
     Route: 050
     Dates: start: 20141025, end: 20141211

REACTIONS (4)
  - Device dislocation [Recovered/Resolved]
  - Abdominal pain upper [Recovered/Resolved]
  - Pneumoperitoneum [Unknown]
  - Infection [Unknown]

NARRATIVE: CASE EVENT DATE: 20141211
